FAERS Safety Report 20986201 (Version 1)
Quarter: 2022Q2

REPORT INFORMATION
  Report Type: Spontaneous
  Country: US (occurrence: US)
  Receive Date: 20220621
  Receipt Date: 20220621
  Transmission Date: 20220721
  Serious: Yes (Other)
  Sender: FDA-Public Use
  Company Number: US-BRISTOL-MYERS SQUIBB COMPANY-2022-059223

PATIENT
  Age: 56 Year
  Sex: Female

DRUGS (2)
  1. ELIQUIS [Suspect]
     Active Substance: APIXABAN
     Indication: Product used for unknown indication
  2. IBRANCE [Suspect]
     Active Substance: PALBOCICLIB
     Indication: Breast cancer
     Dosage: 75 MG TABLET DAILY FOR 21 DAYS OF 35 DAY CYCLE (3 WEEKS ON AND 2 WEEKS OFF) DEPENDS ONLAB RESULTS- C
     Route: 048
     Dates: start: 20190212

REACTIONS (2)
  - Platelet count decreased [Unknown]
  - Malignant neoplasm progression [Unknown]
